FAERS Safety Report 17214411 (Version 1)
Quarter: 2019Q4

REPORT INFORMATION
  Report Type: Spontaneous
  Country: US (occurrence: US)
  Receive Date: 20191206
  Receipt Date: 20191206
  Transmission Date: 20200122
  Serious: No
  Sender: FDA-Public Use
  Company Number: None

PATIENT
  Age: 37 Year
  Sex: Female

DRUGS (1)
  1. ENBREL [Suspect]
     Active Substance: ETANERCEPT
     Route: 058
     Dates: start: 201812

REACTIONS (6)
  - Swelling [None]
  - Manufacturing product shipping issue [None]
  - Therapy cessation [None]
  - Pain in extremity [None]
  - Musculoskeletal pain [None]
  - Inflammation [None]

NARRATIVE: CASE EVENT DATE: 20191204
